FAERS Safety Report 5918898-4 (Version None)
Quarter: 2008Q3

REPORT INFORMATION
  Report Type: 
  Country: None (occurrence: None)
  Receive Date: 20080909
  Receipt Date: 20070810
  Transmission Date: 20090109
  Serious: Yes (Disabling)
  Sender: FDA-Public Use
  Company Number: 163-20785-07060977

PATIENT
  Age: 77 Year
  Sex: Male

DRUGS (6)
  1. THALOMID [Suspect]
     Indication: MULTIPLE MYELOMA
     Dosage: 50 MG, 1 IN 1 D, ORAL
     Route: 047
     Dates: start: 20060419, end: 20070601
  2. WARFARIN SODIUM [Concomitant]
  3. NEPHROCAPS (NEPHROCAPS) [Concomitant]
  4. PROCHLORPERAZINE MALEATE [Concomitant]
  5. CALCIUM ACETATE (CALCIUM ACETATE) [Concomitant]
  6. SULFMETHOXAZOLE TRIMETHOPRIM (BACTRIM) [Concomitant]

REACTIONS (4)
  - BACK PAIN [None]
  - FATIGUE [None]
  - HYPOAESTHESIA [None]
  - PARAESTHESIA [None]
